FAERS Safety Report 8928772 (Version 2)
Quarter: 2013Q1

REPORT INFORMATION
  Report Type: Report from Study
  Country: US (occurrence: US)
  Receive Date: 20121128
  Receipt Date: 20130110
  Transmission Date: 20140127
  Serious: Yes (Hospitalization)
  Sender: FDA-Public Use
  Company Number: US-ASTELLAS-2012US011334

PATIENT
  Age: 10 Year
  Sex: Female
  Weight: 47 kg

DRUGS (8)
  1. TACROLIMUS OINTMENT [Suspect]
     Indication: DERMATITIS ATOPIC
     Dosage: 0.1 %, UID/QD
     Route: 061
     Dates: start: 200701, end: 2009
  2. PREDNISONE [Concomitant]
     Indication: ASTHMA
     Dosage: 20 MG, TID
     Route: 048
     Dates: start: 20111129
  3. AMOXICILLIN [Concomitant]
     Indication: ASTHMA
     Dosage: UNK UNK, UNKNOWN/D
     Route: 048
     Dates: start: 20111129
  4. AMOXICILLIN [Concomitant]
     Indication: UPPER RESPIRATORY TRACT INFECTION
  5. SYMBICORT [Concomitant]
     Indication: ASTHMA
     Dosage: UNK UNK, UNKNOWN/D
     Route: 055
     Dates: start: 20111129
  6. XOPENEX [Concomitant]
     Indication: ASTHMA
     Dosage: UNK UNK, UNKNOWN/D
     Route: 055
     Dates: start: 20111129
  7. BIAXIN [Concomitant]
     Indication: UPPER RESPIRATORY TRACT INFECTION
     Dosage: 2 TABLETS, UID/QD
     Route: 048
     Dates: start: 20111205
  8. BIAXIN [Concomitant]
     Indication: ASTHMA

REACTIONS (2)
  - Off label use [Unknown]
  - Asthma [Recovered/Resolved]
